FAERS Safety Report 6327884-4 (Version None)
Quarter: 2009Q3

REPORT INFORMATION
  Report Type: 
  Country: None (occurrence: None)
  Receive Date: 20090824
  Receipt Date: 20090807
  Transmission Date: 20100115
  Serious: Yes (Hospitalization)
  Sender: FDA-Public Use
  Company Number: DSA_40602_2009

PATIENT
  Sex: Male

DRUGS (9)
  1. HERBESSER (HERBESSER -TANABE (DILTIAZEM HYDROCHLORIDE) ) 100 MG (NOT S [Suspect]
     Indication: DRUG USE FOR UNKNOWN INDICATION
     Dosage: 200 MG QD ORAL
     Route: 048
     Dates: start: 20050101
  2. CHAMPIX /05703002/ (CHAMPIX VARENICLINE TARTRATE) (NOT SPECIFIED) [Suspect]
     Indication: NICOTINE DEPENDENCE
     Dosage: 0.5 MG QD ORAL, 1 MG QD, 2 MG QD
     Route: 048
     Dates: start: 20081211, end: 20081213
  3. CHAMPIX /05703002/ (CHAMPIX VARENICLINE TARTRATE) (NOT SPECIFIED) [Suspect]
     Indication: NICOTINE DEPENDENCE
     Dosage: 0.5 MG QD ORAL, 1 MG QD, 2 MG QD
     Route: 048
     Dates: start: 20081214, end: 20081218
  4. CHAMPIX /05703002/ (CHAMPIX VARENICLINE TARTRATE) (NOT SPECIFIED) [Suspect]
     Indication: NICOTINE DEPENDENCE
     Dosage: 0.5 MG QD ORAL, 1 MG QD, 2 MG QD
     Route: 048
     Dates: start: 20081219, end: 20081224
  5. FLAVOXATE HYDROCHLORIDE [Suspect]
     Indication: DRUG USE FOR UNKNOWN INDICATION
     Dosage: DF
     Dates: start: 20050101
  6. PARIET [Concomitant]
  7. EVIPROSTAT [Concomitant]
  8. MAGNESIUM OXIDE [Concomitant]
  9. BIOFERMIN [Concomitant]

REACTIONS (17)
  - ALANINE AMINOTRANSFERASE INCREASED [None]
  - ALCOHOL USE [None]
  - ASPARTATE AMINOTRANSFERASE INCREASED [None]
  - BLOOD ALKALINE PHOSPHATASE INCREASED [None]
  - BLOOD LACTATE DEHYDROGENASE INCREASED [None]
  - DECREASED APPETITE [None]
  - GAMMA-GLUTAMYLTRANSFERASE INCREASED [None]
  - HEPATIC ATROPHY [None]
  - HEPATIC FUNCTION ABNORMAL [None]
  - HEPATIC STEATOSIS [None]
  - HEPATOMEGALY [None]
  - LIVER DISORDER [None]
  - LYMPHOCYTIC INFILTRATION [None]
  - MALAISE [None]
  - NAUSEA [None]
  - PALPITATIONS [None]
  - VOMITING [None]
